FAERS Safety Report 17484553 (Version 2)
Quarter: 2020Q1

REPORT INFORMATION
  Report Type: Spontaneous
  Country: IS (occurrence: IS)
  Receive Date: 20200302
  Receipt Date: 20200312
  Transmission Date: 20200409
  Serious: Yes (Other)
  Sender: FDA-Public Use
  Company Number: IS-BAYER-2020-033308

PATIENT
  Age: 42 Year
  Sex: Female

DRUGS (1)
  1. MIRENA [Suspect]
     Active Substance: LEVONORGESTREL
     Dosage: 20 ?G PER DAY CONTINUOUSLY
     Route: 015
     Dates: start: 20200115, end: 20200221

REACTIONS (6)
  - Arthralgia [Recovering/Resolving]
  - Joint swelling [Recovering/Resolving]
  - Joint warmth [Recovering/Resolving]
  - Fatigue [Recovering/Resolving]
  - Rheumatoid arthritis [Recovering/Resolving]
  - Nodule [Recovering/Resolving]

NARRATIVE: CASE EVENT DATE: 20200122
